FAERS Safety Report 6713735-2 (Version None)
Quarter: 2010Q2

REPORT INFORMATION
  Report Type: 
  Country: None (occurrence: None)
  Receive Date: 20100506
  Receipt Date: 20100426
  Transmission Date: 20101027
  Serious: Yes (Death, Hospitalization, Other)
  Sender: FDA-Public Use
  Company Number: US-AMGEN-QUU398298

PATIENT
  Sex: Male
  Weight: 118 kg

DRUGS (18)
  1. ENBREL [Suspect]
     Indication: RHEUMATOID ARTHRITIS
     Route: 058
     Dates: start: 20091201
  2. PREDNISONE [Concomitant]
     Dates: start: 19850101
  3. METHOTREXATE [Concomitant]
     Dates: start: 19990101
  4. ASPIRIN [Concomitant]
  5. PLAVIX [Concomitant]
  6. TUMS [Concomitant]
     Route: 048
  7. SENOKOT [Concomitant]
     Route: 048
  8. OXYCONTIN [Concomitant]
     Route: 048
  9. PROTONIX [Concomitant]
     Route: 042
  10. FLOMAX [Concomitant]
  11. FOLIC ACID [Concomitant]
     Route: 048
  12. TYLENOL-500 [Concomitant]
  13. DILAUDID [Concomitant]
     Route: 042
  14. ZOFRAN [Concomitant]
     Route: 042
  15. ROXICODONE [Concomitant]
     Route: 048
  16. PERCOCET [Concomitant]
  17. MIRALAX [Concomitant]
     Route: 048
  18. NASAL SALINE [Concomitant]
     Route: 045

REACTIONS (17)
  - ACUTE MYOCARDIAL INFARCTION [None]
  - ARTHRALGIA [None]
  - ARTHRITIS BACTERIAL [None]
  - CARDIAC ARREST [None]
  - DEEP VEIN THROMBOSIS [None]
  - FEMORAL ARTERY ANEURYSM [None]
  - GASTROINTESTINAL HAEMORRHAGE [None]
  - HAEMOGLOBIN DECREASED [None]
  - HAEMORRHAGE [None]
  - HYPOTENSION [None]
  - PAIN IN EXTREMITY [None]
  - PETECHIAE [None]
  - RENAL FAILURE ACUTE [None]
  - STAPHYLOCOCCAL INFECTION [None]
  - SYNOVIAL CYST [None]
  - TACHYCARDIA [None]
  - VENTRICULAR FIBRILLATION [None]
